FAERS Safety Report 23644724 (Version 1)
Quarter: 2024Q1

REPORT INFORMATION
  Report Type: Spontaneous
  Country: US (occurrence: None)
  Receive Date: 20240318
  Receipt Date: 20240318
  Transmission Date: 20240409
  Serious: Yes (Hospitalization)
  Sender: FDA-Public Use
  Company Number: None

PATIENT
  Sex: Female

DRUGS (1)
  1. VIGABATRIN [Suspect]
     Active Substance: VIGABATRIN
     Indication: Epilepsy
     Dosage: OTHER QUANTITY : 8.5ML (425MG);?FREQUENCY : TWICE A DAY;?
     Route: 048
     Dates: start: 20230919

REACTIONS (2)
  - Hemispherectomy [None]
  - Therapy cessation [None]
